FAERS Safety Report 9863686 (Version 1)
Quarter: 2014Q1

REPORT INFORMATION
  Report Type: Report from Study
  Country: US (occurrence: US)
  Receive Date: 20140203
  Receipt Date: 20140203
  Transmission Date: 20141002
  Serious: Yes (Death, Other)
  Sender: FDA-Public Use
  Company Number: US-BAYER-2014-014176

PATIENT
  Age: 61 Year
  Sex: Male

DRUGS (3)
  1. ACETYLSALICYLIC ACID({=100 MG) [Suspect]
  2. CLOPIDOGREL [Suspect]
  3. WARFARIN [Suspect]

REACTIONS (2)
  - Thrombosis in device [None]
  - Multi-organ failure [Fatal]
